FAERS Safety Report 11696744 (Version 1)
Quarter: 2015Q4

REPORT INFORMATION
  Report Type: Spontaneous
  Country: US (occurrence: US)
  Receive Date: 20151104
  Receipt Date: 20151104
  Transmission Date: 20160304
  Serious: Yes (Hospitalization)
  Sender: FDA-Public Use
  Company Number: US-BAXTER-2015BAX057813

PATIENT
  Age: 60 Year
  Sex: Male
  Weight: 56 kg

DRUGS (1)
  1. DIANEAL LOW CALCIUM PERITONEAL DIALYSIS SOLUTION WITH DEXTROSE [Suspect]
     Active Substance: CALCIUM CHLORIDE\DEXTROSE\MAGNESIUM CHLORIDE\SODIUM CHLORIDE\SODIUM LACTATE
     Indication: CHRONIC KIDNEY DISEASE
     Route: 033
     Dates: end: 20151022

REACTIONS (5)
  - Asthenia [Unknown]
  - International normalised ratio increased [Unknown]
  - Confusional state [Unknown]
  - Nausea [Unknown]
  - Weight decreased [Unknown]

NARRATIVE: CASE EVENT DATE: 201510
